FAERS Safety Report 17661591 (Version 1)
Quarter: 2020Q2

REPORT INFORMATION
  Report Type: Spontaneous
  Country: US (occurrence: US)
  Receive Date: 20200409
  Receipt Date: 20200409
  Transmission Date: 20200713
  Serious: No
  Sender: FDA-Public Use
  Company Number: None

PATIENT
  Sex: Male
  Weight: 122.4 kg

DRUGS (11)
  1. ABIRATERONE ACETATE. [Suspect]
     Active Substance: ABIRATERONE ACETATE
     Dates: end: 20200123
  2. DEXAMETHASONE. [Concomitant]
     Active Substance: DEXAMETHASONE
  3. HYDROCODONE BITARTRATE AND ACETAMINOPHEN [Concomitant]
     Active Substance: ACETAMINOPHEN\HYDROCODONE BITARTRATE
  4. JANUMET [Concomitant]
     Active Substance: METFORMIN HYDROCHLORIDE\SITAGLIPTIN PHOSPHATE
  5. CABAZITAXEL 25MG/M2 TEVA [Suspect]
     Active Substance: CABAZITAXEL
     Dates: end: 20200123
  6. LUPRON [Concomitant]
     Active Substance: LEUPROLIDE ACETATE
  7. PREDNISONE 10MG [Suspect]
     Active Substance: PREDNISONE
     Dates: end: 20200123
  8. ACETAMINOPHEN. [Concomitant]
     Active Substance: ACETAMINOPHEN
  9. ATROVASTATIN [Concomitant]
     Active Substance: ATORVASTATIN CALCIUM
  10. PREDNISONE. [Concomitant]
     Active Substance: PREDNISONE
  11. TRAMADOL. [Concomitant]
     Active Substance: TRAMADOL

REACTIONS (9)
  - Urinary tract infection [None]
  - Pyelonephritis fungal [None]
  - Myalgia [None]
  - Candida test positive [None]
  - Cough [None]
  - Sepsis [None]
  - Ureteric stenosis [None]
  - Pyrexia [None]
  - Pollakiuria [None]

NARRATIVE: CASE EVENT DATE: 20190917
